FAERS Safety Report 5419786-2 (Version None)
Quarter: 2007Q3

REPORT INFORMATION
  Report Type: 
  Country: None (occurrence: None)
  Receive Date: 20070820
  Receipt Date: 20070810
  Transmission Date: 20080115
  Serious: Yes (Other)
  Sender: FDA-Public Use
  Company Number: JP-ASTRAZENECA-2007AP04905

PATIENT
  Age: 33 Year
  Sex: Female

DRUGS (11)
  1. CRESTOR [Suspect]
     Indication: HYPERLIPIDAEMIA
     Route: 048
     Dates: start: 20070619, end: 20070724
  2. IMPROMEN [Concomitant]
     Route: 048
     Dates: start: 20040501
  3. STOBRUN [Concomitant]
     Route: 048
     Dates: start: 20040501
  4. DIAZEPAM [Concomitant]
     Route: 048
     Dates: start: 20040501
  5. SENNOSIDE [Concomitant]
     Route: 048
     Dates: start: 20040501
  6. VEMAS S [Concomitant]
     Route: 048
     Dates: start: 20040501
  7. HALCION [Concomitant]
     Route: 048
     Dates: start: 20040501
  8. NITRAZEPAM [Concomitant]
     Route: 048
     Dates: start: 20040501
  9. SOMELIN [Concomitant]
     Route: 048
     Dates: start: 20040501
  10. SEROQUEL [Concomitant]
     Route: 048
  11. BOFU-TSUSHO-SAN [Concomitant]
     Route: 048

REACTIONS (1)
  - DRUG ERUPTION [None]
